FAERS Safety Report 7133936-1 (Version None)
Quarter: 2010Q4

REPORT INFORMATION
  Report Type: 
  Country: None (occurrence: None)
  Receive Date: 20101203
  Receipt Date: 20100630
  Transmission Date: 20110411
  Serious: Yes (Hospitalization)
  Sender: FDA-Public Use
  Company Number: US-BAYER-201028792NA

PATIENT

DRUGS (8)
  1. YAZ [Suspect]
     Route: 065
  2. YASMIN [Suspect]
     Indication: CONTRACEPTION
     Dosage: 1 TABLET PER DAY. 12 SAMPLES RECEIVED FROM PHYSICIAN
     Route: 065
     Dates: start: 20070101, end: 20080501
  3. OCELLA [Suspect]
     Route: 065
  4. MOTRIN [Concomitant]
     Dosage: 1 TALBET EVERY 8 HOURS IF NEEDED
     Route: 065
  5. SYNTHROID [Concomitant]
     Route: 065
     Dates: start: 19910101
  6. ASCORBIC ACID [Concomitant]
     Route: 065
  7. HYDROCHLOROTHIAZIDE [Concomitant]
     Route: 065
     Dates: start: 20080101
  8. LASIX [Concomitant]
     Route: 065

REACTIONS (6)
  - BREAST MASS [None]
  - DEEP VEIN THROMBOSIS [None]
  - HEPATIC CYST [None]
  - HYPOTHYROIDISM [None]
  - PULMONARY EMBOLISM [None]
  - UTERINE LEIOMYOMA [None]
